FAERS Safety Report 24177286 (Version 1)
Quarter: 2024Q3

REPORT INFORMATION
  Report Type: Spontaneous
  Country: US (occurrence: US)
  Receive Date: 20240806
  Receipt Date: 20240806
  Transmission Date: 20241017
  Serious: No
  Sender: CHIESI
  Company Number: US-CHIESI-2023CHF06564

PATIENT
  Age: 47 Year
  Sex: Female

DRUGS (3)
  1. KENGREAL [Suspect]
     Active Substance: CANGRELOR
     Indication: Cerebral venous sinus thrombosis
     Dosage: 30 MICROGRAM/KILOGRAM, (1X)
     Route: 042
     Dates: start: 20231201, end: 20231201
  2. KENGREAL [Suspect]
     Active Substance: CANGRELOR
     Indication: Thrombectomy
  3. KENGREAL [Suspect]
     Active Substance: CANGRELOR
     Indication: Off label use

REACTIONS (3)
  - Off label use [Recovered/Resolved]
  - Off label use [Recovered/Resolved]
  - Off label use [Recovered/Resolved]

NARRATIVE: CASE EVENT DATE: 20231201
